FAERS Safety Report 6183183-5 (Version None)
Quarter: 2009Q2

REPORT INFORMATION
  Report Type: 
  Country: None (occurrence: None)
  Receive Date: 20090506
  Receipt Date: 20081216
  Transmission Date: 20091009
  Serious: Yes (Other)
  Sender: FDA-Public Use
  Company Number: 2008AP003465

PATIENT
  Age: 9 Month
  Sex: Male

DRUGS (6)
  1. FLUCONAZOLE [Suspect]
     Indication: DRUG USE FOR UNKNOWN INDICATION
     Dosage: 800 MG; QD, TRPL
     Route: 064
  2. EFAVIRENZ [Concomitant]
  3. NEVIRAPINE [Concomitant]
  4. METHADONE HCL [Concomitant]
  5. PENTAMIDINE (PENTAMIDINE) [Concomitant]
  6. SULFAMETHOXAZOLE AND TRIMETHOPRIM [Concomitant]

REACTIONS (21)
  - BACTERAEMIA [None]
  - BODY DYSMORPHIC DISORDER [None]
  - BRACHYCEPHALY [None]
  - CEREBRAL DISORDER [None]
  - CONVULSION NEONATAL [None]
  - CRANIOSYNOSTOSIS [None]
  - DEAFNESS BILATERAL [None]
  - DEVELOPMENTAL DELAY [None]
  - DRUG WITHDRAWAL SYNDROME NEONATAL [None]
  - DYSMORPHISM [None]
  - EXOPHTHALMOS [None]
  - EXTENSOR PLANTAR RESPONSE [None]
  - EYELID PTOSIS [None]
  - HYPERTELORISM OF ORBIT [None]
  - JOINT CONTRACTURE [None]
  - KYPHOSIS [None]
  - MATERNAL DRUGS AFFECTING FOETUS [None]
  - NASAL DISORDER [None]
  - PNEUMONIA STREPTOCOCCAL [None]
  - PROMINENT EPICANTHAL FOLDS [None]
  - TORTICOLLIS [None]
